FAERS Safety Report 24781823 (Version 1)
Quarter: 2024Q4

REPORT INFORMATION
  Report Type: Report from Study
  Country: CA (occurrence: CA)
  Receive Date: 20241227
  Receipt Date: 20241227
  Transmission Date: 20250114
  Serious: Yes (Other)
  Sender: ABBVIE
  Company Number: CA-ABBVIE-6062604

PATIENT
  Age: 43 Year
  Sex: Male

DRUGS (1)
  1. RINVOQ [Suspect]
     Active Substance: UPADACITINIB
     Indication: Crohn^s disease
     Route: 048
     Dates: start: 20240517

REACTIONS (3)
  - Gallbladder obstruction [Unknown]
  - Cholelithiasis [Unknown]
  - Faecal calprotectin increased [Not Recovered/Not Resolved]

NARRATIVE: CASE EVENT DATE: 20240101
